FAERS Safety Report 26048506 (Version 1)
Quarter: 2025Q4

REPORT INFORMATION
  Report Type: Spontaneous
  Country: US (occurrence: US)
  Receive Date: 20251114
  Receipt Date: 20251114
  Transmission Date: 20260118
  Serious: Yes (Hospitalization)
  Sender: NOVO NORDISK
  Company Number: US-NOVOPROD-1560594

PATIENT
  Sex: Male

DRUGS (1)
  1. OZEMPIC [Suspect]
     Active Substance: SEMAGLUTIDE
     Indication: Obesity
     Dosage: UNK
     Dates: start: 202504, end: 202509

REACTIONS (7)
  - Physical assault [Unknown]
  - Neck injury [Unknown]
  - Fall [Unknown]
  - Illness [Unknown]
  - Weight increased [Unknown]
  - Counterfeit product administered [Unknown]
  - Off label use [Unknown]
